FAERS Safety Report 9501381 (Version 1)
Quarter: 2013Q3

REPORT INFORMATION
  Report Type: Spontaneous
  Country: US (occurrence: US)
  Receive Date: 20130905
  Receipt Date: 20130905
  Transmission Date: 20140515
  Serious: No
  Sender: FDA-Public Use
  Company Number: US-PFIZER INC-2013224598

PATIENT
  Sex: Female

DRUGS (2)
  1. TIKOSYN [Suspect]
     Indication: ATRIAL FIBRILLATION
     Dosage: UNK
     Dates: start: 201307
  2. AMIODARONE [Concomitant]
     Dosage: UNK

REACTIONS (2)
  - Pollakiuria [Unknown]
  - Off label use [Unknown]
